FAERS Safety Report 10010194 (Version 1)
Quarter: 2014Q1

REPORT INFORMATION
  Report Type: Spontaneous
  Country: US (occurrence: US)
  Receive Date: 20140312
  Receipt Date: 20140312
  Transmission Date: 20141002
  Serious: No
  Sender: FDA-Public Use
  Company Number: US-INCYTE CORPORATION-2013IN001719

PATIENT
  Sex: Female

DRUGS (6)
  1. JAKAFI [Suspect]
     Indication: LYMPHATIC DISORDER
     Dosage: 15 MG, BID
     Route: 048
     Dates: start: 20130517
  2. JAKAFI [Suspect]
     Indication: HAEMATOLOGICAL MALIGNANCY
  3. TYLENOL ARTHRITIS EXTENDED RELIEF [Concomitant]
     Dosage: 650 MG, UNK
     Route: 048
  4. TRAMADOL HCL [Concomitant]
     Dosage: 50 MG, UNK
     Route: 048
  5. ATENOLOL [Concomitant]
     Dosage: 25 MG, UNK
     Route: 048
  6. PROCHLORPERAZINE [Concomitant]
     Dosage: 10 MG, UNK
     Route: 048

REACTIONS (2)
  - Fatigue [Unknown]
  - Headache [Unknown]
